FAERS Safety Report 15075402 (Version 2)
Quarter: 2023Q4

REPORT INFORMATION
  Report Type: Spontaneous
  Country: US (occurrence: US)
  Receive Date: 20180627
  Receipt Date: 20231128
  Transmission Date: 20240110
  Serious: Yes (Other)
  Sender: FDA-Public Use
  Company Number: US-SAOL THERAPEUTICS-2018SAO00478

PATIENT
  Age: 66 Year
  Sex: Female

DRUGS (3)
  1. BACLOFEN [Suspect]
     Active Substance: BACLOFEN
     Indication: Pain
     Dosage: 3.86 ?G, \DAY
     Route: 037
  2. SUFENTANIL [Suspect]
     Active Substance: SUFENTANIL
     Dosage: 135.09 ?G, \DAY
     Route: 037
  3. BUPIVACAINE [Suspect]
     Active Substance: BUPIVACAINE
     Dosage: 0.675 MG, \DAY
     Route: 037

REACTIONS (3)
  - Pain [Recovered/Resolved]
  - Device malfunction [Recovered/Resolved]
  - Off label use [Unknown]

NARRATIVE: CASE EVENT DATE: 20171223
